FAERS Safety Report 8748036 (Version 2)
Quarter: 2012Q4

REPORT INFORMATION
  Report Type: Report from Study
  Country: CA (occurrence: CA)
  Receive Date: 20120827
  Receipt Date: 20121221
  Transmission Date: 20130627
  Serious: Yes (Other)
  Sender: FDA-Public Use
  Company Number: CA-ABBOTT-12P-028-0970430-00

PATIENT
  Sex: Male
  Weight: 108.96 kg

DRUGS (1)
  1. HUMIRA 40 MG/0.8 ML PEN [Suspect]
     Indication: PSORIATIC ARTHROPATHY
     Route: 058
     Dates: start: 20110215

REACTIONS (4)
  - Transient ischaemic attack [Unknown]
  - Cerebrovascular accident [Unknown]
  - Confusional state [Recovered/Resolved]
  - Balance disorder [Recovered/Resolved]
